FAERS Safety Report 6212788-8 (Version None)
Quarter: 2009Q2

REPORT INFORMATION
  Report Type: 
  Country: None (occurrence: None)
  Receive Date: 20090601
  Receipt Date: 20090518
  Transmission Date: 20091009
  Serious: Yes (Hospitalization)
  Sender: FDA-Public Use
  Company Number: B0575820A

PATIENT
  Age: 81 Year
  Sex: Female

DRUGS (3)
  1. ALBUTEROL SULFATE [Suspect]
     Indication: RESPIRATORY DISORDER
  2. BRONCHODILATOR [Concomitant]
  3. LEVOFLOXACIN [Concomitant]

REACTIONS (3)
  - ACCIDENTAL EXPOSURE [None]
  - ANGLE CLOSURE GLAUCOMA [None]
  - WRONG TECHNIQUE IN DRUG USAGE PROCESS [None]
